FAERS Safety Report 16975846 (Version 43)
Quarter: 2023Q2

REPORT INFORMATION
  Report Type: Report from Study
  Country: GB (occurrence: GB)
  Receive Date: 20191030
  Receipt Date: 20230622
  Transmission Date: 20230721
  Serious: Yes (Life-Threatening, Hospitalization, Other)
  Sender: FDA-Public Use
  Company Number: GB-ROCHE-1671632

PATIENT
  Age: 45 Year
  Sex: Female
  Weight: 80 kg

DRUGS (226)
  1. EXEMESTANE [Suspect]
     Active Substance: EXEMESTANE
     Indication: Breast cancer metastatic
     Dosage: 25 MILLIGRAM, QD (START DATE:18-MAY-2015)
     Route: 048
  2. EXEMESTANE [Suspect]
     Active Substance: EXEMESTANE
     Indication: Metastases to bone
     Dosage: 25 MILLIGRAM, QD
     Route: 048
  3. EXEMESTANE [Suspect]
     Active Substance: EXEMESTANE
     Dosage: 25 MG, QD (18-MAY-2015)
     Route: 048
  4. EXEMESTANE [Suspect]
     Active Substance: EXEMESTANE
     Dosage: UNK
     Route: 065
  5. EXEMESTANE [Suspect]
     Active Substance: EXEMESTANE
     Dosage: 600 MILLIGRAM, Q3W/23-JUL-2016
     Route: 065
  6. EXEMESTANE [Suspect]
     Active Substance: EXEMESTANE
     Dosage: 600 MILLIGRAM, Q3W (23-JUL-2018)
     Route: 065
  7. TRASTUZUMAB [Suspect]
     Active Substance: TRASTUZUMAB
     Indication: Breast cancer metastatic
     Dosage: 483 MG, QD LOADING DOSE
     Route: 042
     Dates: start: 20150803, end: 20150803
  8. TRASTUZUMAB [Suspect]
     Active Substance: TRASTUZUMAB
     Dosage: 600 MG, QD LOADING DOSE (17-DEC-2015)
     Route: 042
     Dates: end: 20160308
  9. TRASTUZUMAB [Suspect]
     Active Substance: TRASTUZUMAB
     Dosage: 600 MG, Q3W LOADING DOSE (08-MAR-2016)
     Route: 042
     Dates: end: 20160308
  10. TRASTUZUMAB [Suspect]
     Active Substance: TRASTUZUMAB
     Dosage: 600 MG, Q3W(23-JUL-2016)
     Route: 042
  11. TRASTUZUMAB [Suspect]
     Active Substance: TRASTUZUMAB
     Dosage: RECENT DOSE DATE(600MG)OFTRASTUZUMAB17-DEC-2015
     Route: 042
     Dates: start: 20150308, end: 20160308
  12. TRASTUZUMAB [Suspect]
     Active Substance: TRASTUZUMAB
     Dosage: 600 MG, Q3W/ 600 MILLIGRAM, 3 TIMES IN A WEEK, MAINTAINANCE DOSE (25-AUG-2015)
     Route: 042
     Dates: end: 20151117
  13. TRASTUZUMAB [Suspect]
     Active Substance: TRASTUZUMAB
     Dosage: 600 MILLIGRAM, Q3W/23-JUN-2016
     Route: 058
  14. TRASTUZUMAB [Suspect]
     Active Substance: TRASTUZUMAB
     Dosage: UNK(STOPPED)
     Route: 065
  15. TRASTUZUMAB [Suspect]
     Active Substance: TRASTUZUMAB
     Dosage: 600 MILLIGRAM, Q3W LOADING DOSE START:08-MAR-2016
     Route: 058
     Dates: end: 20160308
  16. TRASTUZUMAB [Suspect]
     Active Substance: TRASTUZUMAB
     Dosage: 600 MG, TIW, (23-JUN-2016)
     Route: 042
  17. TRASTUZUMAB [Suspect]
     Active Substance: TRASTUZUMAB
     Dosage: 483 MILLIGRAM, Q3W (03-AUG-2015)
     Route: 042
     Dates: end: 20150803
  18. TRASTUZUMAB [Suspect]
     Active Substance: TRASTUZUMAB
     Dosage: RECENT DOSE DATE (600MG)OFTRASTUZUMAB23/JUN/2016, (17-DEC-2015)
     Route: 042
     Dates: end: 20160308
  19. TRASTUZUMAB [Suspect]
     Active Substance: TRASTUZUMAB
     Dosage: 600 MILLIGRAM, (RECENT DOSE DATE (600MG)OFTRASTUZUMAB23/JUN/2016, (17-DEC-2015)
     Route: 042
  20. TRASTUZUMAB [Suspect]
     Active Substance: TRASTUZUMAB
     Dosage: 1800 MILLIGRAM, QW (TIW), (23-JUN-2016)
     Route: 065
  21. TRASTUZUMAB [Suspect]
     Active Substance: TRASTUZUMAB
     Dosage: 600 MILLIGRAM, Q3W (25-AUG-2015)
     Route: 042
     Dates: end: 20151117
  22. TRASTUZUMAB [Suspect]
     Active Substance: TRASTUZUMAB
     Dosage: 600 MILLIGRAM 3XW(600 MG, 3 PER WEEK)
     Route: 058
  23. TRASTUZUMAB [Suspect]
     Active Substance: TRASTUZUMAB
     Dosage: 600 MILLIGRAM(483 MG, QD LOADING DOSE INTRAVENOUS
     Route: 042
     Dates: start: 20150803, end: 20150803
  24. TRASTUZUMAB [Suspect]
     Active Substance: TRASTUZUMAB
     Dosage: 483 MILLIGRAM, 3XW
     Route: 042
  25. IBANDRONATE SODIUM [Suspect]
     Active Substance: IBANDRONATE SODIUM
     Indication: Metastases to bone
     Dosage: 50 MILLIGRAM, QD/18-MAY-2015
     Route: 048
  26. IBANDRONATE SODIUM [Suspect]
     Active Substance: IBANDRONATE SODIUM
     Dosage: UNK, START:18-MAY-2015
     Route: 048
  27. DOCETAXEL [Suspect]
     Active Substance: DOCETAXEL
     Indication: Breast cancer metastatic
     Dosage: 120 MILLIGRAM, 3XW (START: 04-AUG-2015)
     Route: 042
     Dates: end: 20151117
  28. DOCETAXEL [Suspect]
     Active Substance: DOCETAXEL
     Dosage: 120 MILLIGRAM, Q3W/14-AUG-2015
     Route: 042
     Dates: end: 20151117
  29. DOCETAXEL [Suspect]
     Active Substance: DOCETAXEL
     Dosage: 120 MILLIGRAM, Q3W, START 04-AUG-2015
     Route: 042
  30. DOCETAXEL [Suspect]
     Active Substance: DOCETAXEL
     Dosage: 120MGQ3W(PLANNO.OFCYCLECOMPLETED)START04-AUG-2015
     Route: 042
     Dates: end: 20151117
  31. DOCETAXEL [Suspect]
     Active Substance: DOCETAXEL
     Dosage: 600 MILLIGRAM, Q3W, START:17-DEC-2015
     Route: 042
     Dates: end: 20160308
  32. DOCETAXEL [Suspect]
     Active Substance: DOCETAXEL
     Dosage: 120 MILLIGRAM, Q3W/8-AUG-2015
     Route: 042
     Dates: end: 20151117
  33. DOCETAXEL [Suspect]
     Active Substance: DOCETAXEL
     Dosage: 120 MG, Q3W
     Route: 042
     Dates: start: 20150804, end: 20151117
  34. DOCETAXEL [Suspect]
     Active Substance: DOCETAXEL
     Dosage: 120 MILLIGRAM, Q3W (14-AUG-2015)
     Route: 042
     Dates: end: 20151117
  35. DOCETAXEL [Suspect]
     Active Substance: DOCETAXEL
     Dosage: 120 MILLIGRAM
     Route: 042
     Dates: start: 20150808, end: 20151117
  36. DOCETAXEL [Suspect]
     Active Substance: DOCETAXEL
     Dosage: 600 MG, Q3W (17-DEC-2015)
     Route: 042
     Dates: end: 20160308
  37. DOCETAXEL [Suspect]
     Active Substance: DOCETAXEL
     Dosage: 600 MILLIGRAM, Q3W
     Route: 042
  38. DOCETAXEL [Suspect]
     Active Substance: DOCETAXEL
     Dosage: 600 MILLIGRAM, Q3W/17-NOV-2015
     Route: 065
     Dates: end: 20160308
  39. DOCETAXEL [Suspect]
     Active Substance: DOCETAXEL
     Dosage: 600 MILLIGRAM, Q3W/17-FEB-2015
     Route: 065
     Dates: end: 20160308
  40. DOCETAXEL [Suspect]
     Active Substance: DOCETAXEL
     Dosage: UNK, Q3W/14-AUG-2015
     Route: 042
     Dates: end: 20151117
  41. DOCETAXEL [Suspect]
     Active Substance: DOCETAXEL
     Dosage: 120 MILLIGRAM, Q3W
     Route: 042
  42. EXEMESTANE [Suspect]
     Active Substance: EXEMESTANE
     Indication: Breast cancer metastatic
     Dosage: 25 MILLIGRAM, QD (START DATE:18-MAY-2015)
     Route: 048
  43. EXEMESTANE [Suspect]
     Active Substance: EXEMESTANE
     Indication: Metastases to bone
     Dosage: 600 MILLIGRAM, Q3WK (23-JUL-2016)
     Route: 065
  44. ANASTROZOLE [Suspect]
     Active Substance: ANASTROZOLE
     Indication: Product used for unknown indication
     Dosage: 1 MILLIGRAM, QD
     Route: 048
     Dates: start: 20150616
  45. BONVIVA [Suspect]
     Active Substance: IBANDRONATE SODIUM
     Indication: Metastases to bone
     Dosage: UNK
     Route: 065
  46. BONVIVA [Suspect]
     Active Substance: IBANDRONATE SODIUM
     Dosage: 50 MILLIGRAM, QD/18-MAY-2015
     Route: 048
  47. BONVIVA [Suspect]
     Active Substance: IBANDRONATE SODIUM
     Dosage: 50 MILLIGRAM/18-MAY-2015
     Route: 048
  48. HYALURONIDASE [Suspect]
     Active Substance: HYALURONIDASE
     Indication: Product used for unknown indication
     Dosage: 600 MILLIGRAM, Q3W, START 25-AUG-2015
     Route: 058
     Dates: end: 20151117
  49. HYALURONIDASE [Suspect]
     Active Substance: HYALURONIDASE
     Dosage: 600 MILLIGRAM, Q3WK (23-JUL-2016)
     Route: 058
  50. HYALURONIDASE [Suspect]
     Active Substance: HYALURONIDASE
     Dosage: UNK, START 08-MAR-2016
     Route: 058
  51. HYALURONIDASE [Suspect]
     Active Substance: HYALURONIDASE
     Dosage: 600 MILLIGRAM, QW, START:25-AUG-2015
     Route: 058
     Dates: end: 20151117
  52. HYALURONIDASE [Suspect]
     Active Substance: HYALURONIDASE
     Dosage: 600 MILLIGRAM, Q3W (23-JUN-2016)
     Route: 058
  53. HYALURONIDASE [Suspect]
     Active Substance: HYALURONIDASE
     Dosage: 600 MILLIGRAM(ORAL) (08-MAR-2016)
     Route: 048
  54. HYALURONIDASE (HUMAN RECOMBINANT)\TRASTUZUMAB [Suspect]
     Active Substance: HYALURONIDASE (HUMAN RECOMBINANT)\TRASTUZUMAB
     Indication: Breast cancer metastatic
     Dosage: 600 MILLIGRAM, Q3W(LOADING DOSE,START 08-MAR-2016
     Route: 058
     Dates: end: 20160308
  55. HYALURONIDASE (HUMAN RECOMBINANT)\TRASTUZUMAB [Suspect]
     Active Substance: HYALURONIDASE (HUMAN RECOMBINANT)\TRASTUZUMAB
     Dosage: UNK (STOPPED )
     Route: 058
     Dates: end: 20160308
  56. HYALURONIDASE (HUMAN RECOMBINANT)\TRASTUZUMAB [Suspect]
     Active Substance: HYALURONIDASE (HUMAN RECOMBINANT)\TRASTUZUMAB
     Dosage: 600 MG,Q3W(MAINTAINANCE DOSE),START 25-AUG-2015
     Route: 058
     Dates: end: 20151117
  57. HYALURONIDASE (HUMAN RECOMBINANT)\TRASTUZUMAB [Suspect]
     Active Substance: HYALURONIDASE (HUMAN RECOMBINANT)\TRASTUZUMAB
     Dosage: 600 MILLIGRAM, Q3W, START 23-JUN-2016
     Route: 058
  58. HYALURONIDASE (HUMAN RECOMBINANT)\TRASTUZUMAB [Suspect]
     Active Substance: HYALURONIDASE (HUMAN RECOMBINANT)\TRASTUZUMAB
     Dosage: 600 MG ONCE IN 3 WEEKS, (08-MAR-2016)
     Route: 042
     Dates: end: 20160308
  59. PERTUZUMAB [Suspect]
     Active Substance: PERTUZUMAB
     Indication: Breast cancer metastatic
     Dosage: 840 MG, UNK ONE CYCLE (LOADING DOSE)
     Route: 042
     Dates: start: 20150804, end: 20150804
  60. PERTUZUMAB [Suspect]
     Active Substance: PERTUZUMAB
     Dosage: (MAINTENANCE DOSE), 3XW/25-AUG-2015
     Route: 042
     Dates: end: 20151117
  61. PERTUZUMAB [Suspect]
     Active Substance: PERTUZUMAB
     Dosage: 420 MG, QD MAINTENANCE DOSE, (15-JUL-2016)
     Route: 042
  62. PERTUZUMAB [Suspect]
     Active Substance: PERTUZUMAB
     Dosage: 420 MILLIGRAM (MAINTENANCE DOSE), 3XW/17-DEC-2015
     Route: 042
     Dates: end: 20160308
  63. PERTUZUMAB [Suspect]
     Active Substance: PERTUZUMAB
     Dosage: 840 MILLIGRAM, QD (LOADING DOSE)/23-JUN-2016
     Route: 042
     Dates: end: 20160623
  64. PERTUZUMAB [Suspect]
     Active Substance: PERTUZUMAB
     Dosage: RECENT DOSE DATE 420 MG OF PERTUZUMAB 15/JUL/2016
     Route: 042
  65. PERTUZUMAB [Suspect]
     Active Substance: PERTUZUMAB
     Dosage: 840 MG, 1X (LOADING DOSE) (23-JUN-2016)
     Route: 042
     Dates: end: 20160623
  66. PERTUZUMAB [Suspect]
     Active Substance: PERTUZUMAB
     Dosage: UNK, QD (ONE CYCLE (LOADING DOSE)
     Route: 042
  67. PERTUZUMAB [Suspect]
     Active Substance: PERTUZUMAB
     Dosage: RECENT DOSE 420 MG OF PERTU 15/JUL/2016840 MG,Q3W
     Route: 042
  68. PERTUZUMAB [Suspect]
     Active Substance: PERTUZUMAB
     Dosage: Q3W(840 MG,Q3WK,LOADING DOSE),START 04-AUG-2016
     Route: 042
     Dates: start: 20150804, end: 20150804
  69. PERTUZUMAB [Suspect]
     Active Substance: PERTUZUMAB
     Dosage: 840 MILLIGRAM, Q3W, START 23-JUN-2016
     Route: 042
     Dates: end: 20160623
  70. PERTUZUMAB [Suspect]
     Active Substance: PERTUZUMAB
     Dosage: 420 MILLIGRAM, Q3W, START 15-JUL-2016
     Route: 042
  71. PERTUZUMAB [Suspect]
     Active Substance: PERTUZUMAB
     Dosage: 420 MILLIGRAM, Q3W, START 17-DEC-2015
     Route: 042
     Dates: end: 20160308
  72. PERTUZUMAB [Suspect]
     Active Substance: PERTUZUMAB
     Dosage: Q3W(420 MG, Q3WK, MD), START 25-AUG-2015
     Route: 042
     Dates: end: 20151117
  73. PERTUZUMAB [Suspect]
     Active Substance: PERTUZUMAB
     Dosage: 600 MILLIGRAM, QD, START:17-DEC-2015
     Route: 065
     Dates: end: 20160308
  74. PERTUZUMAB [Suspect]
     Active Substance: PERTUZUMAB
     Dosage: 420 MILLIGRAM, QD, MAINTENANCE DOSE (15-JUL-2016)
     Route: 042
  75. PERTUZUMAB [Suspect]
     Active Substance: PERTUZUMAB
     Dosage: DOSEDATE(420MG)PERTUZUMAB08/MAR/20161X(LD)INTOTAL (23-JUN-2016)
     Route: 042
  76. PERTUZUMAB [Suspect]
     Active Substance: PERTUZUMAB
     Dosage: 420 MG, Q3W MAINTAINANCE DOSE (25-AUG-2015)
     Route: 042
     Dates: end: 20151117
  77. PERTUZUMAB [Suspect]
     Active Substance: PERTUZUMAB
     Dosage: 1X, ONE CYCLE, LOADING DOSE; IN TOTAL
     Route: 042
     Dates: start: 20150804, end: 20150804
  78. PERTUZUMAB [Suspect]
     Active Substance: PERTUZUMAB
     Dosage: 420 MG, Q3W MAINTAINANCE DOSE (17-DEC-2015)
     Route: 042
     Dates: end: 20160308
  79. PERTUZUMAB [Suspect]
     Active Substance: PERTUZUMAB
     Dosage: 420 MILLIGRAM/8-MAR-2016MAINTENANCE DOSE
     Route: 042
  80. PERTUZUMAB [Suspect]
     Active Substance: PERTUZUMAB
     Dosage: 420 MILLIGRAM, 3XW/17/NOV/2015RECENT DOSE
     Route: 042
  81. HYALURONIDASE [Suspect]
     Active Substance: HYALURONIDASE
     Indication: Metastases to bone
     Dosage: 3000 MG, START:08-MAR-2016
     Route: 048
  82. HYALURONIDASE [Suspect]
     Active Substance: HYALURONIDASE
     Dosage: 50 MG, QD
     Route: 065
     Dates: start: 20150518
  83. HYALURONIDASE [Suspect]
     Active Substance: HYALURONIDASE
     Dosage: 600 MILLIGRAM, Q3W, (23-JUL-2016)
     Route: 058
  84. HYALURONIDASE [Suspect]
     Active Substance: HYALURONIDASE
     Dosage: 600 MILLIGRAM, 3 TIMES IN A WEEK MAINTAINANCE DOSE, (25-AUG-2015)
     Route: 058
     Dates: end: 20151117
  85. HYALURONIDASE [Suspect]
     Active Substance: HYALURONIDASE
     Dosage: 600 MILLIGRAM, Q3W, (23-JUN-2016)
     Route: 058
  86. HYALURONIDASE [Suspect]
     Active Substance: HYALURONIDASE
     Dosage: UNK, (08-MAR-2016)
     Route: 058
  87. HERCEPTIN [Suspect]
     Active Substance: TRASTUZUMAB
     Indication: Product used for unknown indication
     Dosage: 600 MG, QD LOADING DOSE/17-DEC-2015
     Route: 042
     Dates: end: 20160308
  88. HERCEPTIN [Suspect]
     Active Substance: TRASTUZUMAB
     Dosage: 483 MILLIGRAM, QD/03-AUG-2015
     Route: 042
     Dates: end: 20150803
  89. SYNVISC [Suspect]
     Active Substance: HYLAN G-F 20
     Indication: Product used for unknown indication
     Dosage: UNK
     Route: 065
  90. SYNVISC [Suspect]
     Active Substance: HYLAN G-F 20
     Dosage: UNK, (08-MAR-2016)
     Route: 065
     Dates: end: 20160308
  91. SYNVISC [Suspect]
     Active Substance: HYLAN G-F 20
     Dosage: 600 MILLIGRAM, Q3W, (25-AUG-2015)
     Route: 065
     Dates: end: 20151117
  92. SYNVISC [Suspect]
     Active Substance: HYLAN G-F 20
     Dosage: 600 MILLIGRAM, Q3W, (23-JUN-2016)
     Route: 065
  93. SYNVISC [Suspect]
     Active Substance: HYLAN G-F 20
     Dosage: UNK
     Route: 065
  94. TAXOTERE [Suspect]
     Active Substance: DOCETAXEL
     Indication: Breast cancer metastatic
     Dosage: 120 MG, 3XW (START:14-AUG-2015)
     Route: 042
     Dates: end: 20151117
  95. TAXOTERE [Suspect]
     Active Substance: DOCETAXEL
     Dosage: 120 MG, Q3W, (14-AUG-2015)
     Route: 042
     Dates: end: 20151117
  96. TAXOTERE [Suspect]
     Active Substance: DOCETAXEL
     Dosage: 120 MG, 3XW (START:14-AUG-2015)
     Route: 042
  97. HYALURONIDASE (HUMAN RECOMBINANT) [Suspect]
     Active Substance: HYALURONIDASE (HUMAN RECOMBINANT)
     Indication: Breast cancer metastatic
     Dosage: 3 TIMES A WK, MAINTAINANCE DOSE START:25-AUG-2015
     Route: 058
     Dates: end: 20151117
  98. HYALURONIDASE (HUMAN RECOMBINANT) [Suspect]
     Active Substance: HYALURONIDASE (HUMAN RECOMBINANT)
     Dosage: 600 MILLIGRAM, 3 TIMES IN A WEEK MAINTAINANCE DOSE (25-AUG-2015)
     Route: 042
     Dates: end: 20151117
  99. HYALURONIDASE (HUMAN RECOMBINANT) [Suspect]
     Active Substance: HYALURONIDASE (HUMAN RECOMBINANT)
     Dosage: UNK(08-MAR-2016)
     Route: 058
     Dates: end: 20160308
  100. HYALURONIDASE (HUMAN RECOMBINANT) [Suspect]
     Active Substance: HYALURONIDASE (HUMAN RECOMBINANT)
     Dosage: 600 MILLIGRAM, Q3W
     Route: 042
     Dates: end: 20160308
  101. HYALURONIDASE (HUMAN RECOMBINANT) [Suspect]
     Active Substance: HYALURONIDASE (HUMAN RECOMBINANT)
     Dosage: 600 MILLIGRAM, Q3W, (23-JUN-2016)
     Route: 042
  102. HYALURONIDASE (HUMAN RECOMBINANT) [Suspect]
     Active Substance: HYALURONIDASE (HUMAN RECOMBINANT)
     Dosage: 600 MG, Q3W, (23-JUL-2016)
     Route: 058
  103. HYALURONIDASE (HUMAN RECOMBINANT) [Suspect]
     Active Substance: HYALURONIDASE (HUMAN RECOMBINANT)
     Dosage: 3000 MG, Q3W, START:23-JUN-2016
     Route: 065
  104. HYALURONIDASE (HUMAN RECOMBINANT) [Suspect]
     Active Substance: HYALURONIDASE (HUMAN RECOMBINANT)
     Dosage: UNK, 3XW, (25-AUG-2015)
     Route: 058
     Dates: end: 20151117
  105. HYALURONIDASE (HUMAN RECOMBINANT) [Suspect]
     Active Substance: HYALURONIDASE (HUMAN RECOMBINANT)
     Dosage: UNK(ROA ORAL)
     Route: 065
  106. HYALURONIDASE (HUMAN RECOMBINANT) [Suspect]
     Active Substance: HYALURONIDASE (HUMAN RECOMBINANT)
     Dosage: 120 MILLIGRAM, 3XW
     Route: 042
     Dates: start: 20150804, end: 20151117
  107. HYALURONIDASE (HUMAN RECOMBINANT) [Suspect]
     Active Substance: HYALURONIDASE (HUMAN RECOMBINANT)
     Dosage: 600 MILLIGRAM, Q3W(600 MILLIGRAM, Q3W), (08-MAR-2016)
     Route: 065
  108. HYALURONIDASE (HUMAN RECOMBINANT) [Suspect]
     Active Substance: HYALURONIDASE (HUMAN RECOMBINANT)
     Dosage: 120 MILLIGRAM, Q3W
     Route: 042
     Dates: start: 20150808, end: 20151117
  109. HYALURONIDASE (HUMAN RECOMBINANT) [Suspect]
     Active Substance: HYALURONIDASE (HUMAN RECOMBINANT)
     Dosage: 1800 MILLIGRAM, QW(1800MG EVERY 1 WEEK ), (25-AUG-2015)
     Route: 065
     Dates: end: 20151117
  110. HYALURONIDASE (HUMAN RECOMBINANT) [Suspect]
     Active Substance: HYALURONIDASE (HUMAN RECOMBINANT)
     Dosage: 600 MILLIGRAM, Q3W, (17-DEC-2015)
     Route: 042
     Dates: end: 20160308
  111. HYALURONIDASE (HUMAN RECOMBINANT) [Suspect]
     Active Substance: HYALURONIDASE (HUMAN RECOMBINANT)
     Dosage: 120 MILLIGRAM, Q3W, (14-AUG-2015)
     Route: 042
     Dates: end: 20151117
  112. PROLIA [Suspect]
     Active Substance: DENOSUMAB
     Indication: Product used for unknown indication
     Dosage: UNK
     Route: 065
  113. SODIUM HYALURONATE [Suspect]
     Active Substance: HYALURONATE SODIUM
     Indication: Product used for unknown indication
     Dosage: UNK, QD08-MAR-2016
     Route: 065
     Dates: end: 20160308
  114. SODIUM HYALURONATE [Suspect]
     Active Substance: HYALURONATE SODIUM
     Dosage: 600 MG, Q3W, START: 25-AUG-2015
     Route: 065
     Dates: end: 20151117
  115. SODIUM HYALURONATE [Suspect]
     Active Substance: HYALURONATE SODIUM
     Dosage: 600 MG, Q3W, START:23-JUN-2016
     Route: 065
  116. SODIUM HYALURONATE [Suspect]
     Active Substance: HYALURONATE SODIUM
     Dosage: 600 MG, Q3W, (23-MAY-2016)
     Route: 065
  117. SODIUM HYALURONATE [Suspect]
     Active Substance: HYALURONATE SODIUM
     Dosage: UNK UNK, QD, (08-MAR-2016)
     Route: 065
     Dates: end: 20160308
  118. SODIUM HYALURONATE [Suspect]
     Active Substance: HYALURONATE SODIUM
     Dosage: 600 MG Q3W, (25-AUG-2015)
     Route: 065
     Dates: end: 20151117
  119. IBANDRONIC ACID [Suspect]
     Active Substance: IBANDRONIC ACID
     Indication: Metastases to bone
     Dosage: 50 MILLIGRAM, QD (18-MAY-2015)
     Route: 048
  120. IBANDRONIC ACID [Suspect]
     Active Substance: IBANDRONIC ACID
     Indication: Breast cancer metastatic
     Dosage: 420 MILLIGRAM, QD(420 MG, EVERY 1 DAY), (15-JUL-2018)
     Route: 065
  121. IBANDRONIC ACID [Suspect]
     Active Substance: IBANDRONIC ACID
     Dosage: 420 MILLIGRAM(MAINTENANCE DOSE), (15-JUL-2016)
     Route: 065
  122. IBANDRONIC ACID [Suspect]
     Active Substance: IBANDRONIC ACID
     Dosage: 50 MG, QD
     Route: 048
     Dates: start: 20150518
  123. TRASTUZUMAB [Suspect]
     Active Substance: TRASTUZUMAB
     Indication: Breast cancer metastatic
     Dosage: LOADING DOSE, (08-MAR-2016)
     Route: 058
     Dates: end: 20160308
  124. TRASTUZUMAB [Suspect]
     Active Substance: TRASTUZUMAB
     Dosage: 600 MILLIGRAM, (25-AUG-2015)
     Route: 058
     Dates: end: 20151117
  125. TRASTUZUMAB [Suspect]
     Active Substance: TRASTUZUMAB
     Dosage: 600 MILLIGRAM, (23-JUL-2016)
     Route: 058
  126. TRASTUZUMAB [Suspect]
     Active Substance: TRASTUZUMAB
     Dosage: 600 MILLIGRAM, (23-JUN-2016)
     Route: 058
  127. DENOSUMAB [Concomitant]
     Active Substance: DENOSUMAB
     Indication: Product used for unknown indication
     Dosage: UNK, START 27-JAN-2016
     Route: 065
  128. DENOSUMAB [Concomitant]
     Active Substance: DENOSUMAB
     Dosage: 120 MG, MONTHLY, (27-JAN-2016)
     Route: 058
     Dates: end: 201802
  129. DENOSUMAB [Concomitant]
     Active Substance: DENOSUMAB
     Dosage: 120 MG, MONTHLY, START 27-JAN-2016
     Route: 058
     Dates: end: 201802
  130. DENOSUMAB [Concomitant]
     Active Substance: DENOSUMAB
     Dosage: 120 MILLIGRAM, MONTHLY
     Route: 058
  131. DENOSUMAB [Concomitant]
     Active Substance: DENOSUMAB
     Dosage: 3 DAYS 2 WEEKS
     Route: 065
     Dates: start: 20150803
  132. DENOSUMAB [Concomitant]
     Active Substance: DENOSUMAB
     Dosage: 3 DAYS  EVERY 3 WEEKS
     Route: 058
     Dates: start: 20150803
  133. DEXAMETHASONE [Concomitant]
     Active Substance: DEXAMETHASONE
     Indication: Product used for unknown indication
     Dosage: UNK, START 03-AUG-2015
     Route: 048
  134. DEXAMETHASONE [Concomitant]
     Active Substance: DEXAMETHASONE
     Dosage: 8 MILLIGRAM FOR 3 DAYS EVERY 3 WEEKS
     Route: 048
     Dates: start: 20150803
  135. DEXAMETHASONE [Concomitant]
     Active Substance: DEXAMETHASONE
     Dosage: 8 MG, Q3W(3 DAYS EVERY 3 WKS), START 03-AUG-2015
     Route: 048
  136. DEXAMETHASONE [Concomitant]
     Active Substance: DEXAMETHASONE
     Dosage: FOR 3 DAYS EVERY 3 WEEKS
     Route: 048
     Dates: start: 20150803
  137. PIPERACILLIN SODIUM\TAZOBACTAM SODIUM [Concomitant]
     Active Substance: PIPERACILLIN SODIUM\TAZOBACTAM SODIUM
     Indication: Device related infection
     Dosage: 600 MG, QD (EVERY 3 WK, START DATE: 23-JUL-2016)
     Route: 058
  138. PIPERACILLIN SODIUM\TAZOBACTAM SODIUM [Concomitant]
     Active Substance: PIPERACILLIN SODIUM\TAZOBACTAM SODIUM
     Dosage: 600 MG, Q3W, START 23-JUL-2016
     Route: 058
  139. PIPERACILLIN SODIUM\TAZOBACTAM SODIUM [Concomitant]
     Active Substance: PIPERACILLIN SODIUM\TAZOBACTAM SODIUM
     Dosage: UNK, (30-NOV-2015)
     Route: 065
     Dates: end: 20151209
  140. PIPERACILLIN SODIUM\TAZOBACTAM SODIUM [Concomitant]
     Active Substance: PIPERACILLIN SODIUM\TAZOBACTAM SODIUM
     Dosage: 600 MILLIGRAM EVERY 3 WEEKS, (23-JUL-2016)
     Route: 042
  141. PIPERACILLIN SODIUM\TAZOBACTAM SODIUM [Concomitant]
     Active Substance: PIPERACILLIN SODIUM\TAZOBACTAM SODIUM
     Dosage: 600 MILLIGRAM, Q3W, (23-JUL-2016)
     Route: 042
  142. PIPERACILLIN SODIUM\TAZOBACTAM SODIUM [Concomitant]
     Active Substance: PIPERACILLIN SODIUM\TAZOBACTAM SODIUM
     Dosage: UNK
     Route: 065
  143. PIPERACILLIN SODIUM\TAZOBACTAM SODIUM [Concomitant]
     Active Substance: PIPERACILLIN SODIUM\TAZOBACTAM SODIUM
     Dosage: UNK, (30-NOV-2015)
     Route: 058
     Dates: end: 20151209
  144. AMOXICILLIN\CLAVULANATE POTASSIUM [Concomitant]
     Active Substance: AMOXICILLIN\CLAVULANATE POTASSIUM
     Indication: Vascular device infection
     Dosage: UNK
     Route: 065
  145. AMOXICILLIN\CLAVULANATE POTASSIUM [Concomitant]
     Active Substance: AMOXICILLIN\CLAVULANATE POTASSIUM
     Dosage: 625 MILLIGRAM, TID, START 15-SEP-2016
     Route: 048
  146. AMOXICILLIN\CLAVULANATE POTASSIUM [Concomitant]
     Active Substance: AMOXICILLIN\CLAVULANATE POTASSIUM
     Dosage: 1875 MILLIGRAM, QD, START 15-SEP-2016
     Route: 048
  147. AMOXICILLIN\CLAVULANATE POTASSIUM [Concomitant]
     Active Substance: AMOXICILLIN\CLAVULANATE POTASSIUM
     Dosage: 1875 MILLIGRAM(625 MG, TID, ORAL USE), (15-SEP-2016)
     Route: 048
  148. BISOPROLOL [Concomitant]
     Active Substance: BISOPROLOL
     Indication: Product used for unknown indication
     Dosage: UNK
     Route: 065
  149. BISOPROLOL [Concomitant]
     Active Substance: BISOPROLOL
     Dosage: 1000 MG, QD, (08-SEP-2016)
     Route: 048
  150. BISOPROLOL [Concomitant]
     Active Substance: BISOPROLOL
     Dosage: UNK
     Route: 065
  151. RAMIPRIL [Concomitant]
     Active Substance: RAMIPRIL
     Indication: Ejection fraction decreased
     Dosage: UNK
     Route: 065
  152. RAMIPRIL [Concomitant]
     Active Substance: RAMIPRIL
     Dosage: 10 MILLIGRAM, (MAR-2016)
     Route: 048
  153. RAMIPRIL [Concomitant]
     Active Substance: RAMIPRIL
     Dosage: UNK, START MAR-2016
     Route: 048
  154. BENZYDAMINE [Concomitant]
     Active Substance: BENZYDAMINE
     Indication: Metastases to bone
     Dosage: UNK
     Route: 065
  155. BENZYDAMINE [Concomitant]
     Active Substance: BENZYDAMINE
     Indication: Gingival swelling
     Dosage: 15 MILLIGRAM, QID
     Route: 048
  156. BENZYDAMINE [Concomitant]
     Active Substance: BENZYDAMINE
     Indication: Mucosal inflammation
     Dosage: 15 MILLIGRAM, QD
     Route: 065
     Dates: start: 20150308, end: 20150817
  157. BENZYDAMINE [Concomitant]
     Active Substance: BENZYDAMINE
     Dosage: 15 ML, 2X/DAY
     Route: 048
     Dates: start: 20150308
  158. BENZYDAMINE [Concomitant]
     Active Substance: BENZYDAMINE
     Dosage: 60 ML, 1X/DAY
     Route: 048
     Dates: start: 20150803, end: 20150817
  159. BENZYDAMINE [Concomitant]
     Active Substance: BENZYDAMINE
     Dosage: 15 MILLIGRAM, QD
     Route: 065
     Dates: start: 201508
  160. BENZYDAMINE [Concomitant]
     Active Substance: BENZYDAMINE
     Dosage: UNK
     Route: 048
     Dates: start: 201508
  161. BENZYDAMINE [Concomitant]
     Active Substance: BENZYDAMINE
     Dosage: 15 MILLIGRAM, QID,
     Route: 048
     Dates: end: 20150817
  162. BENZYDAMINE [Concomitant]
     Active Substance: BENZYDAMINE
     Dosage: 15 MILLILITER, START:03-AUG-2015
     Route: 048
     Dates: end: 20150817
  163. BENZYDAMINE [Concomitant]
     Active Substance: BENZYDAMINE
     Dosage: UNK, START:??-AUG-2015
     Route: 048
  164. BENZYDAMINE [Concomitant]
     Active Substance: BENZYDAMINE
     Dosage: 60 MILLILITER, QD, START:03-AUG-2015
     Route: 048
     Dates: end: 20150817
  165. BENZYDAMINE [Concomitant]
     Active Substance: BENZYDAMINE
     Dosage: 15 MILLIGRAM, QD, START:??-AUG-2015
     Route: 065
  166. ACETAMINOPHEN [Concomitant]
     Active Substance: ACETAMINOPHEN
     Indication: Device related infection
     Dosage: 500 MILLIGRAM, QID
     Route: 048
     Dates: start: 20141211, end: 20141224
  167. ACETAMINOPHEN [Concomitant]
     Active Substance: ACETAMINOPHEN
     Indication: Vascular device infection
     Dosage: 2000 MILLIGRAM, QD
     Route: 048
     Dates: start: 20141211, end: 20141224
  168. ACETAMINOPHEN [Concomitant]
     Active Substance: ACETAMINOPHEN
     Dosage: 4 GRAM, QD, (16-SEP-2016)
     Route: 048
  169. ACETAMINOPHEN [Concomitant]
     Active Substance: ACETAMINOPHEN
     Dosage: 4 GRAM, QD(4 G, 1X/DAY (EVERY DAY)), (16-SEP-2016)
     Route: 048
  170. ACETAMINOPHEN [Concomitant]
     Active Substance: ACETAMINOPHEN
     Dosage: 1 GRAM, QID(1 GRAM, QID (8 HOUR)), (16-SEP-2016)
     Route: 048
  171. ACETAMINOPHEN [Concomitant]
     Active Substance: ACETAMINOPHEN
     Dosage: UNK
     Route: 065
  172. ACETAMINOPHEN [Concomitant]
     Active Substance: ACETAMINOPHEN
     Dosage: 1 GRAM, QID
     Route: 048
  173. ACETAMINOPHEN [Concomitant]
     Active Substance: ACETAMINOPHEN
     Dosage: 1 GRAM, QD
     Route: 048
  174. ACETAMINOPHEN [Concomitant]
     Active Substance: ACETAMINOPHEN
     Dosage: 2800 MILLIGRAM
     Route: 065
  175. ACETAMINOPHEN [Concomitant]
     Active Substance: ACETAMINOPHEN
     Dosage: 1 GRAM, QID
     Route: 048
  176. CIPROFLOXACIN [Concomitant]
     Active Substance: CIPROFLOXACIN
     Indication: Device related infection
     Dosage: UNK
     Route: 065
  177. CIPROFLOXACIN [Concomitant]
     Active Substance: CIPROFLOXACIN
     Indication: Vascular device infection
     Dosage: 1000 MILLIGRAM, QD,
     Route: 048
  178. CIPROFLOXACIN [Concomitant]
     Active Substance: CIPROFLOXACIN
     Dosage: 1000 MILLIGRAM, QD,
     Route: 048
     Dates: end: 20151215
  179. CIPROFLOXACIN [Concomitant]
     Active Substance: CIPROFLOXACIN
     Dosage: 500 MILLIGRAM, BID,
     Route: 048
     Dates: end: 20151215
  180. CIPROFLOXACIN [Concomitant]
     Active Substance: CIPROFLOXACIN
     Dosage: 8 MILLIGRAM
     Route: 065
     Dates: start: 20150803
  181. CIPROFLOXACIN [Concomitant]
     Active Substance: CIPROFLOXACIN
     Dosage: 1000 MG, 1X/DAY, (10-DEC-2015)
     Route: 048
     Dates: end: 20151215
  182. CIPROFLOXACIN [Concomitant]
     Active Substance: CIPROFLOXACIN
     Dosage: 1000 MILLIGRAM, QD, (10-DEC-2015)
     Route: 048
     Dates: end: 20151215
  183. CIPROFLOXACIN [Concomitant]
     Active Substance: CIPROFLOXACIN
     Dosage: 1000 MILLIGRAM, QD, (08-SEP-2016)
     Route: 048
  184. MEROPENEM [Concomitant]
     Active Substance: MEROPENEM
     Indication: Device related infection
     Dosage: UNK
     Route: 065
  185. MEROPENEM [Concomitant]
     Active Substance: MEROPENEM
     Dosage: 3 G, 1X/DAY, (18-SEP-2016)
     Route: 042
  186. MEROPENEM [Concomitant]
     Active Substance: MEROPENEM
     Dosage: 3 GRAM, QD, START 18-SEP-2016
     Route: 042
  187. MEROPENEM [Concomitant]
     Active Substance: MEROPENEM
     Dosage: 2000 MILLIGRAM(2000 MILLIGRAM, EVERY 1 DAY)
     Route: 065
     Dates: start: 20141211, end: 20141224
  188. GENTAMICIN [Concomitant]
     Active Substance: GENTAMICIN
     Indication: Device related infection
     Dosage: UNK, (30-NOV-2015)
     Route: 065
     Dates: end: 20151209
  189. GENTAMICIN [Concomitant]
     Active Substance: GENTAMICIN
     Dosage: UNK, (30-NOV-2015)
     Route: 065
     Dates: end: 20151209
  190. IRON [Concomitant]
     Active Substance: IRON
     Indication: Serum ferritin decreased
     Dosage: 3 G, QD, 18-SEP-2016
     Route: 042
  191. IRON [Concomitant]
     Active Substance: IRON
     Dosage: UNKTABLET (UNCOATED, ORAL)
     Route: 048
  192. IRON [Concomitant]
     Active Substance: IRON
     Dosage: UNK
     Route: 048
  193. IRON [Concomitant]
     Active Substance: IRON
     Dosage: UNK
     Route: 065
  194. IRON [Concomitant]
     Active Substance: IRON
     Dosage: 3 GRAM, QD, (18-SEP-2016)
     Route: 042
  195. IRON [Concomitant]
     Active Substance: IRON
     Route: 048
  196. CALCIUM [Concomitant]
     Active Substance: CALCIUM
     Indication: Product used for unknown indication
     Dosage: UNK
     Route: 065
  197. CALCIUM [Concomitant]
     Active Substance: CALCIUM
     Dosage: UNK
     Route: 065
  198. CALCIUM [Concomitant]
     Active Substance: CALCIUM
     Dosage: UNK
     Route: 065
  199. CALCIUM [Concomitant]
     Active Substance: CALCIUM
     Dosage: UNK
     Route: 065
  200. BENZYDAMINE HYDROCHLORIDE [Concomitant]
     Active Substance: BENZYDAMINE HYDROCHLORIDE
     Indication: Metastases to bone
     Dosage: 15 MILLIGRAM, QD,
     Route: 065
     Dates: end: 20150817
  201. BENZYDAMINE HYDROCHLORIDE [Concomitant]
     Active Substance: BENZYDAMINE HYDROCHLORIDE
     Indication: Mucosal inflammation
     Dosage: 15 MILLIGRAM, BID,
     Route: 065
  202. BENZYDAMINE HYDROCHLORIDE [Concomitant]
     Active Substance: BENZYDAMINE HYDROCHLORIDE
     Indication: Gingival swelling
     Dosage: 15 MILLIGRAM(15 MG, EVERY 6 HOURS/ QID)
     Route: 065
     Dates: start: 20150308, end: 20150817
  203. BENZYDAMINE HYDROCHLORIDE [Concomitant]
     Active Substance: BENZYDAMINE HYDROCHLORIDE
     Dosage: 15 MILLIGRAM, QD
     Route: 065
     Dates: start: 20150308, end: 20150817
  204. BENZYDAMINE HYDROCHLORIDE [Concomitant]
     Active Substance: BENZYDAMINE HYDROCHLORIDE
     Dosage: 30 MILLIGRAM, QD
     Route: 048
     Dates: start: 20150308
  205. BENZYDAMINE HYDROCHLORIDE [Concomitant]
     Active Substance: BENZYDAMINE HYDROCHLORIDE
     Dosage: 15 MILLIGRAM, QID
     Route: 048
     Dates: start: 20150308, end: 20150817
  206. BENZYDAMINE HYDROCHLORIDE [Concomitant]
     Active Substance: BENZYDAMINE HYDROCHLORIDE
     Dosage: 900 MILLILITER
     Route: 048
     Dates: start: 201508
  207. BENZYDAMINE HYDROCHLORIDE [Concomitant]
     Active Substance: BENZYDAMINE HYDROCHLORIDE
     Dosage: 30 MILLIGRAM, BID(30 MG, BID/ 15 ML, 2X/DAY)
     Route: 065
     Dates: start: 201508
  208. BENZYDAMINE HYDROCHLORIDE [Concomitant]
     Active Substance: BENZYDAMINE HYDROCHLORIDE
     Dosage: 60 MILLILITER, QD
     Route: 048
     Dates: start: 20150803, end: 20150817
  209. BENZYDAMINE HYDROCHLORIDE [Concomitant]
     Active Substance: BENZYDAMINE HYDROCHLORIDE
     Dosage: 15 MILLIGRAM, QID
     Route: 048
     Dates: start: 201508
  210. BENZYDAMINE HYDROCHLORIDE [Concomitant]
     Active Substance: BENZYDAMINE HYDROCHLORIDE
     Dosage: 30 MILLILITER(15 ML, 2X/DAY)
     Route: 048
  211. BENZYDAMINE HYDROCHLORIDE [Concomitant]
     Active Substance: BENZYDAMINE HYDROCHLORIDE
     Dosage: 30 MILLILITER(15 ML, 2X/DAY CUMULATIVE DOSE 900ML
     Route: 048
     Dates: start: 20150308
  212. AMOXICILLIN\CLAVULANATE POTASSIUM [Concomitant]
     Active Substance: AMOXICILLIN\CLAVULANATE POTASSIUM
     Indication: Vascular device infection
     Dosage: 120 MILLIGRAM, QD,
     Route: 058
  213. AMOXICILLIN\CLAVULANATE POTASSIUM [Concomitant]
     Active Substance: AMOXICILLIN\CLAVULANATE POTASSIUM
     Dosage: 120 MILLIGRAM, (27-JAN-2016)
     Route: 058
  214. DENOSUMAB [Concomitant]
     Active Substance: DENOSUMAB
     Indication: Product used for unknown indication
     Dosage: 8 MILLIGRAM,3 DAYS
     Route: 065
  215. DENOSUMAB [Concomitant]
     Active Substance: DENOSUMAB
     Dosage: 8 MILLIGRAM, Q3W
     Route: 048
  216. DENOSUMAB [Concomitant]
     Active Substance: DENOSUMAB
     Dosage: 3 DAYS  EVERY 3 WEEKS
     Route: 058
     Dates: start: 20150803
  217. DENOSUMAB [Concomitant]
     Active Substance: DENOSUMAB
     Dosage: UNK(3 DAYS 2 WEEKS (XVEGA) DOSE: 1)
     Route: 058
     Dates: start: 20150803
  218. DENOSUMAB [Concomitant]
     Active Substance: DENOSUMAB
     Dosage: 120 MG, MONTHLY, (27-JAN-2016)
     Route: 058
     Dates: end: 201802
  219. XGEVA [Concomitant]
     Active Substance: DENOSUMAB
     Indication: Product used for unknown indication
     Dosage: 120 MILLIGRAM, MONTHLY, (27-JAN-2016)
     Route: 065
     Dates: end: 201802
  220. XGEVA [Concomitant]
     Active Substance: DENOSUMAB
     Dosage: UNK, Q3W
     Route: 058
     Dates: start: 20150803
  221. XGEVA [Concomitant]
     Active Substance: DENOSUMAB
     Dosage: 24 MILLIGRAM(24 MILLIGRAM EVERY 3 DAYS)
     Route: 058
     Dates: start: 20150803
  222. XGEVA [Concomitant]
     Active Substance: DENOSUMAB
     Dosage: UNK(1 EVERY 3 WEEKS; 3 DAYS 2 WEEKS)
     Route: 065
     Dates: start: 20150803
  223. AMOXICILLIN\CLAVULANATE POTASSIUM [Concomitant]
     Active Substance: AMOXICILLIN\CLAVULANATE POTASSIUM
     Indication: Vascular device infection
     Dosage: 1875 MILLIGRAM, QD, (15-SEP-2016)
     Route: 065
  224. AMOXICILLIN\CLAVULANATE POTASSIUM [Concomitant]
     Active Substance: AMOXICILLIN\CLAVULANATE POTASSIUM
     Dosage: 120 MILLIGRAM, (27-JAN-2016)
     Route: 065
  225. IBANDRONIC ACID [Concomitant]
     Active Substance: IBANDRONIC ACID
     Indication: Metastases to bone
     Dosage: 50 MILLIGRAM, QD
     Route: 065
     Dates: start: 20150518
  226. IBANDRONIC ACID [Concomitant]
     Active Substance: IBANDRONIC ACID
     Dosage: 50 MILLIGRAM, QD(50 MG, DAILY)
     Route: 048
     Dates: start: 20150518

REACTIONS (18)
  - Sepsis [Recovered/Resolved]
  - Off label use [Unknown]
  - Vascular device infection [Recovered/Resolved]
  - Hot flush [Unknown]
  - Epistaxis [Recovered/Resolved]
  - Ejection fraction decreased [Recovered/Resolved]
  - Gastrooesophageal reflux disease [Recovered/Resolved]
  - Rash [Recovered/Resolved]
  - Device related infection [Recovered/Resolved]
  - Osteonecrosis of jaw [Not Recovered/Not Resolved]
  - Mucosal inflammation [Recovered/Resolved]
  - Lymphoedema [Recovered/Resolved]
  - Diarrhoea [Recovered/Resolved]
  - Fatigue [Not Recovered/Not Resolved]
  - Gingival swelling [Recovered/Resolved]
  - Anaemia [Recovered/Resolved]
  - Alopecia [Recovered/Resolved]
  - Influenza like illness [Recovered/Resolved]

NARRATIVE: CASE EVENT DATE: 20150801
